FAERS Safety Report 8053429-7 (Version None)
Quarter: 2012Q1

REPORT INFORMATION
  Report Type: 
  Country: None (occurrence: None)
  Receive Date: 20120118
  Receipt Date: 20111027
  Transmission Date: 20120608
  Serious: Yes (Other)
  Sender: FDA-Public Use
  Company Number: US-GLAXOSMITHKLINE-A0961602A

PATIENT
  Age: 28 Year
  Sex: Female

DRUGS (9)
  1. LAMICTAL [Suspect]
     Indication: AFFECTIVE DISORDER
     Dosage: 50MGD PER DAY
     Route: 048
     Dates: start: 20110921
  2. LEVONORGESTREL [Suspect]
     Indication: CONTRACEPTION
     Route: 065
  3. SINGULAIR [Concomitant]
  4. LAMOTRIGINE [Suspect]
     Indication: AFFECTIVE DISORDER
     Route: 048
     Dates: start: 20111025
  5. ALLEGRA [Concomitant]
  6. VALIUM [Concomitant]
  7. BUPROPION HYDROCHLORIDE [Concomitant]
     Route: 048
  8. VYVANSE [Concomitant]
  9. ROBAXIN [Concomitant]

REACTIONS (7)
  - MOOD ALTERED [None]
  - VISION BLURRED [None]
  - MUSCLE SPASMS [None]
  - CRYING [None]
  - ABDOMINAL PAIN LOWER [None]
  - SUICIDAL IDEATION [None]
  - METRORRHAGIA [None]
